FAERS Safety Report 8602389-6 (Version None)
Quarter: 2012Q3

REPORT INFORMATION
  Report Type: 
  Country: None (occurrence: None)
  Receive Date: 20120817
  Receipt Date: 20120810
  Transmission Date: 20120928
  Serious: Yes (Hospitalization)
  Sender: FDA-Public Use
  Company Number: US-BAYER-2012-062374

PATIENT
  Age: 35 Year
  Sex: Female
  Weight: 57.596 kg

DRUGS (2)
  1. MIRENA [Suspect]
     Indication: CONTRACEPTION
     Dosage: 20 MCG/24HR, CONT
     Route: 015
     Dates: start: 20120515, end: 20120524
  2. MIRENA [Suspect]
     Indication: MENORRHAGIA

REACTIONS (9)
  - BACK PAIN [None]
  - ABDOMINAL DISCOMFORT [None]
  - HOT FLUSH [None]
  - DEVICE DISLOCATION [None]
  - ABDOMINAL PAIN [None]
  - VAGINAL DISCHARGE [None]
  - MEDICAL DEVICE DISCOMFORT [None]
  - ABDOMINAL DISTENSION [None]
  - PELVIC PAIN [None]
